FAERS Safety Report 6767458-4 (Version None)
Quarter: 2010Q2

REPORT INFORMATION
  Report Type: 
  Country: None (occurrence: None)
  Receive Date: 20100614
  Receipt Date: 20100601
  Transmission Date: 20101027
  Serious: Yes (Other)
  Sender: FDA-Public Use
  Company Number: PHHY2010VE36859

PATIENT
  Sex: Female

DRUGS (6)
  1. SANDOSTATIN [Suspect]
     Dosage: 0.5 ML, QD
     Route: 058
     Dates: start: 20090601
  2. SANDOSTATIN LAR [Suspect]
     Dosage: 20 MG, EVERY 28 DAYS
     Route: 030
     Dates: start: 20090701
  3. PANKREOSIL [Concomitant]
     Indication: DYSPEPSIA
     Dosage: UNK
     Dates: start: 20100210
  4. LEVOTHYROXINE SODIUM [Concomitant]
     Indication: THYROID DISORDER
     Dosage: 100 MG, QD
  5. FOLIC ACID [Concomitant]
     Dosage: 40 MG, QD
     Dates: start: 20100101
  6. MULTI-VITAMIN [Concomitant]
     Dosage: ONCE A DAY AFTER BREAKFAST
     Dates: start: 20100401

REACTIONS (4)
  - NEPHRECTOMY [None]
  - PANCREATECTOMY [None]
  - SPLENECTOMY [None]
  - TUMOUR EXCISION [None]
